FAERS Safety Report 9700398 (Version 1)
Quarter: 2013Q4

REPORT INFORMATION
  Report Type: Spontaneous
  Country: PT (occurrence: None)
  Receive Date: 20131119
  Receipt Date: 20131119
  Transmission Date: 20140711
  Serious: Yes (Hospitalization)
  Sender: FDA-Public Use
  Company Number: VAL_02824_2013

PATIENT
  Age: 30 Year
  Sex: Male

DRUGS (11)
  1. BROMOCRIPTINE [Suspect]
     Indication: PRODUCT USED FOR UNKNOWN INDICATION
     Dosage: DF
  2. VALPROIC ACID [Suspect]
     Indication: TREMOR
     Dosage: DF
  3. OLANZAPINE [Suspect]
     Indication: PRODUCT USED FOR UNKNOWN INDICATION
     Dosage: DF
  4. DIAZEPAM [Suspect]
     Indication: PRODUCT USED FOR UNKNOWN INDICATION
     Dosage: DF
  5. HALOPERIDOL [Suspect]
     Indication: PRODUCT USED FOR UNKNOWN INDICATION
     Dosage: DF
  6. ALPRAZOLAM [Suspect]
     Indication: ANXIETY DISORDER
  7. ACICLOVIR [Suspect]
     Indication: PRODUCT USED FOR UNKNOWN INDICATION
  8. CEFTRIAXONE [Suspect]
     Indication: PRODUCT USED FOR UNKNOWN INDICATION
  9. DANTROLENE [Suspect]
     Indication: PRODUCT USED FOR UNKNOWN INDICATION
     Dosage: DF
  10. PROPOFOL [Suspect]
     Indication: GRAND MAL CONVULSION
  11. MIDAZOLAM [Suspect]
     Indication: GRAND MAL CONVULSION
     Dosage: DF

REACTIONS (31)
  - Insomnia [None]
  - Restlessness [None]
  - Tachycardia [None]
  - Tremor [None]
  - Hyperhidrosis [None]
  - Dyspnoea [None]
  - Irritability [None]
  - Aggression [None]
  - Hyperthermia [None]
  - Grand mal convulsion [None]
  - Electroencephalogram abnormal [None]
  - Dyskinesia [None]
  - Choreoathetosis [None]
  - Dystonia [None]
  - Posture abnormal [None]
  - Autonomic nervous system imbalance [None]
  - Hypertension [None]
  - Hypoventilation [None]
  - Encephalitis autoimmune [None]
  - Haemoptysis [None]
  - Hypofibrinogenaemia [None]
  - Anaemia [None]
  - Hypotension [None]
  - Hypometabolism [None]
  - Hypermetabolism [None]
  - Encephalitis autoimmune [None]
  - Nervous system disorder [None]
  - Apathy [None]
  - Impulsive behaviour [None]
  - Unresponsive to stimuli [None]
  - Depressed level of consciousness [None]
